FAERS Safety Report 23536262 (Version 3)
Quarter: 2024Q1

REPORT INFORMATION
  Report Type: Spontaneous
  Country: US (occurrence: US)
  Receive Date: 20240219
  Receipt Date: 20240305
  Transmission Date: 20240410
  Serious: No
  Sender: FDA-Public Use
  Company Number: US-BoehringerIngelheim-2024-BI-008871

PATIENT
  Age: 26 Year
  Sex: Male

DRUGS (2)
  1. CYLTEZO [Suspect]
     Active Substance: ADALIMUMAB-ADBM
     Indication: Psoriatic arthropathy
     Dates: start: 202312
  2. CYLTEZO [Suspect]
     Active Substance: ADALIMUMAB-ADBM
     Indication: Rheumatoid arthritis

REACTIONS (1)
  - Drug screen false positive [Unknown]

NARRATIVE: CASE EVENT DATE: 20240101
